FAERS Safety Report 5057645-8 (Version None)
Quarter: 2006Q3

REPORT INFORMATION
  Report Type: 
  Country: None (occurrence: None)
  Receive Date: 20060721
  Receipt Date: 20060106
  Transmission Date: 20061208
  Serious: No
  Sender: FDA-Public Use
  Company Number: US-GLAXOSMITHKLINE-A0588181A

PATIENT
  Age: 72 Year
  Sex: Female

DRUGS (8)
  1. AVANDIA [Suspect]
     Dosage: 4MG PER DAY
     Route: 048
  2. ACCUPRIL [Concomitant]
  3. NORVASC [Concomitant]
  4. ZOCOR [Concomitant]
  5. ZETIA [Concomitant]
  6. THYROID TAB [Concomitant]
  7. PREVACID [Concomitant]
  8. GLUCOVANCE [Concomitant]

REACTIONS (4)
  - DYSPNOEA [None]
  - NODULE [None]
  - OEDEMA PERIPHERAL [None]
  - PALPITATIONS [None]
